FAERS Safety Report 12315255 (Version 1)
Quarter: 2016Q2

REPORT INFORMATION
  Report Type: Spontaneous
  Country: US (occurrence: US)
  Receive Date: 20160428
  Receipt Date: 20160428
  Transmission Date: 20160815
  Serious: No
  Sender: FDA-Public Use
  Company Number: US-ENDO PHARMACEUTICALS INC.-2016-002493

PATIENT
  Sex: Male
  Weight: 77.18 kg

DRUGS (6)
  1. TRIAMCINOLONE [Concomitant]
     Active Substance: TRIAMCINOLONE
     Indication: RASH
  2. ZYVOX [Concomitant]
     Active Substance: LINEZOLID
     Indication: SKIN INFECTION
  3. RANITIDINE. [Concomitant]
     Active Substance: RANITIDINE
     Indication: EPIGASTRIC DISCOMFORT
  4. MUPIROCIN. [Concomitant]
     Active Substance: MUPIROCIN
     Indication: SKIN INFECTION
  5. ELOCON [Concomitant]
     Active Substance: MOMETASONE FUROATE
     Indication: RASH
  6. DOXYCYCLINE HYCLATE 100MG [Suspect]
     Active Substance: DOXYCYCLINE HYCLATE
     Route: 065

REACTIONS (1)
  - Drug resistance [Unknown]
